FAERS Safety Report 9839581 (Version 1)
Quarter: 2014Q1

REPORT INFORMATION
  Report Type: Spontaneous
  Country: LK (occurrence: LK)
  Receive Date: 20140124
  Receipt Date: 20140124
  Transmission Date: 20141002
  Serious: Yes (Other)
  Sender: FDA-Public Use
  Company Number: LK-BEH-2014040277

PATIENT
  Age: 27 Year
  Sex: Female

DRUGS (1)
  1. INTRA VENOUS IMMUNOGLOBULIN [Suspect]
     Indication: GUILLAIN-BARRE SYNDROME
     Route: 042

REACTIONS (5)
  - Retinal vein occlusion [Unknown]
  - Diplopia [Unknown]
  - Visual acuity reduced [Unknown]
  - Papilloedema [Unknown]
  - Eye haemorrhage [Recovering/Resolving]
